FAERS Safety Report 8563500-9 (Version None)
Quarter: 2012Q3

REPORT INFORMATION
  Report Type: 
  Country: None (occurrence: None)
  Receive Date: 20120802
  Receipt Date: 20120719
  Transmission Date: 20120928
  Serious: Yes (Disabling, Other)
  Sender: FDA-Public Use
  Company Number: CHPA2012US009352

PATIENT
  Age: 83 Year
  Sex: Female
  Weight: 81.633 kg

DRUGS (6)
  1. DRUG THERAPY NOS [Concomitant]
     Indication: ANTICOAGULANT THERAPY
     Dosage: UNK, UNK
  2. BENEFIBER W/ WHEAT DEXTRIN [Suspect]
     Indication: BOWEL MOVEMENT IRREGULARITY
     Dosage: 3 TSP, BID
     Route: 048
     Dates: start: 20110101, end: 20120101
  3. BENEFIBER STICK PACKS [Suspect]
     Dosage: 1 DF, BID
     Route: 048
  4. QUININE SULFATE [Concomitant]
     Indication: MUSCLE SPASMS
     Dosage: UNK, QAM
  5. LIPOFLAVONOID [Concomitant]
     Dosage: UNK, UNK
  6. BENEFIBER W/ WHEAT DEXTRIN [Suspect]
     Dosage: 2 DF, BID
     Route: 048

REACTIONS (22)
  - INFECTION [None]
  - COUGH [None]
  - ASTHENIA [None]
  - INCREASED UPPER AIRWAY SECRETION [None]
  - OFF LABEL USE [None]
  - DYSPNOEA [None]
  - TYMPANIC MEMBRANE PERFORATION [None]
  - HEAD INJURY [None]
  - MALAISE [None]
  - DEAFNESS [None]
  - LIMB INJURY [None]
  - NAIL BED BLEEDING [None]
  - BACK PAIN [None]
  - INSOMNIA [None]
  - PRURITUS [None]
  - BURNING SENSATION [None]
  - THERAPEUTIC RESPONSE UNEXPECTED [None]
  - FALL [None]
  - CONTUSION [None]
  - MIDDLE EAR EFFUSION [None]
  - WEIGHT INCREASED [None]
  - ERYTHEMA [None]
